FAERS Safety Report 17886047 (Version 1)
Quarter: 2020Q2

REPORT INFORMATION
  Report Type: Spontaneous
  Country: CA (occurrence: CA)
  Receive Date: 20200611
  Receipt Date: 20200611
  Transmission Date: 20200714
  Serious: Yes (Hospitalization, Other)
  Sender: FDA-Public Use
  Company Number: CA-AMGEN-CANSP2020015673

PATIENT
  Age: 66 Year
  Sex: Female

DRUGS (2)
  1. SYNTHROID [Concomitant]
     Active Substance: LEVOTHYROXINE SODIUM
     Dosage: 0.112 MILLIGRAM
  2. PROLIA [Suspect]
     Active Substance: DENOSUMAB
     Indication: OSTEOPOROSIS POSTMENOPAUSAL
     Dosage: 60 MILLIGRAM PER MILLILITRE
     Route: 065
     Dates: start: 201805

REACTIONS (15)
  - Gait disturbance [Unknown]
  - Feeling hot [Unknown]
  - Dyspnoea [Unknown]
  - Nasal ulcer [Unknown]
  - Heart rate increased [Unknown]
  - Urinary tract infection [Unknown]
  - Sepsis [Recovered/Resolved]
  - Exercise tolerance decreased [Unknown]
  - Fatigue [Unknown]
  - Arthralgia [Unknown]
  - Skin ulcer [Unknown]
  - Pruritus [Unknown]
  - Pain in extremity [Unknown]
  - Throat tightness [Unknown]
  - Stomatitis [Unknown]

NARRATIVE: CASE EVENT DATE: 2018
